FAERS Safety Report 23883190 (Version 1)
Quarter: 2024Q2

REPORT INFORMATION
  Report Type: Spontaneous
  Country: FR (occurrence: FR)
  Receive Date: 20240522
  Receipt Date: 20240522
  Transmission Date: 20240715
  Serious: Yes (Death, Hospitalization, Other)
  Sender: FDA-Public Use
  Company Number: None

PATIENT
  Age: 34 Year
  Sex: Male

DRUGS (19)
  1. QUETIAPINE [Suspect]
     Active Substance: QUETIAPINE
     Indication: Product used for unknown indication
  2. ACETAMINOPHEN\CODEINE PHOSPHATE [Suspect]
     Active Substance: ACETAMINOPHEN\CODEINE PHOSPHATE
     Indication: Product used for unknown indication
  3. VALIUM [Suspect]
     Active Substance: DIAZEPAM
     Indication: Bipolar disorder
  4. NAFRONYL [Suspect]
     Active Substance: NAFRONYL
     Indication: Product used for unknown indication
  5. TEMAZEPAM [Suspect]
     Active Substance: TEMAZEPAM
     Indication: Product used for unknown indication
  6. PAROXETINE [Suspect]
     Active Substance: PAROXETINE
     Indication: Product used for unknown indication
     Dates: start: 201608, end: 20160908
  7. MEPHENESIN [Suspect]
     Active Substance: MEPHENESIN
     Indication: Product used for unknown indication
  8. COCAINE [Suspect]
     Active Substance: COCAINE
     Indication: Product used for unknown indication
  9. AMISULPRIDE [Suspect]
     Active Substance: AMISULPRIDE
     Indication: Bipolar disorder
  10. THIOCOLCHICOSIDE [Suspect]
     Active Substance: THIOCOLCHICOSIDE
     Indication: Product used for unknown indication
  11. CLOBAZAM [Suspect]
     Active Substance: CLOBAZAM
     Indication: Product used for unknown indication
     Dates: start: 201608, end: 20160908
  12. CODEINE\IBUPROFEN [Suspect]
     Active Substance: CODEINE\IBUPROFEN
     Indication: Product used for unknown indication
  13. SKENAN [Suspect]
     Active Substance: MORPHINE SULFATE
     Indication: Product used for unknown indication
     Dates: start: 201608, end: 20160908
  14. ACETAMINOPHEN\TRAMADOL [Suspect]
     Active Substance: ACETAMINOPHEN\TRAMADOL
     Indication: Product used for unknown indication
  15. ETIFOXINE [Suspect]
     Active Substance: ETIFOXINE
     Indication: Product used for unknown indication
     Dates: start: 201608, end: 20160908
  16. ARTANE [Suspect]
     Active Substance: TRIHEXYPHENIDYL HYDROCHLORIDE
     Indication: Product used for unknown indication
     Dates: start: 201608, end: 20160908
  17. PAROXETINE MESYLATE [Suspect]
     Active Substance: PAROXETINE MESYLATE
     Indication: Product used for unknown indication
     Dates: start: 201608, end: 20160908
  18. MIANSERIN HYDROCHLORIDE [Suspect]
     Active Substance: MIANSERIN HYDROCHLORIDE
     Indication: Bipolar disorder
  19. OXAZEPAM [Suspect]
     Active Substance: OXAZEPAM
     Indication: Bipolar disorder

REACTIONS (8)
  - Intentional self-injury [Fatal]
  - Drug abuse [Fatal]
  - Acute pulmonary oedema [Fatal]
  - Coronary artery stenosis [Fatal]
  - Synovitis [Unknown]
  - Hepatic cytolysis [Fatal]
  - Toxicity to various agents [Fatal]
  - Cardiac disorder [Fatal]

NARRATIVE: CASE EVENT DATE: 20160902
